FAERS Safety Report 12647923 (Version 2)
Quarter: 2016Q3

REPORT INFORMATION
  Report Type: Spontaneous
  Country: EE (occurrence: EE)
  Receive Date: 20160812
  Receipt Date: 20160812
  Transmission Date: 20161109
  Serious: Yes (Hospitalization)
  Sender: FDA-Public Use
  Company Number: EE-SA-2016SA142868

PATIENT
  Age: 54 Year
  Sex: Male
  Weight: 250 kg

DRUGS (15)
  1. ENOXAPARIN SODIUM. [Suspect]
     Active Substance: ENOXAPARIN SODIUM
     Indication: THROMBOSIS PROPHYLAXIS
     Route: 065
  2. ENOXAPARIN SODIUM. [Suspect]
     Active Substance: ENOXAPARIN SODIUM
     Indication: THROMBOSIS PROPHYLAXIS
     Route: 065
  3. OMEPRAZOLE. [Concomitant]
     Active Substance: OMEPRAZOLE
  4. METOPROLOL. [Concomitant]
     Active Substance: METOPROLOL
     Dosage: POLONGED-RELEASE
  5. METRONIDAZOLE. [Concomitant]
     Active Substance: METRONIDAZOLE
  6. AMIODARONE [Concomitant]
     Active Substance: AMIODARONE
  7. OSELTAMIVIR [Concomitant]
     Active Substance: OSELTAMIVIR
     Indication: PNEUMONIA
  8. TAZOBACTAM/PIPERACILLIN [Concomitant]
  9. SPIRONOLACTONE. [Concomitant]
     Active Substance: SPIRONOLACTONE
  10. RIVAROXABAN [Concomitant]
     Active Substance: RIVAROXABAN
  11. ENOXAPARIN SODIUM. [Suspect]
     Active Substance: ENOXAPARIN SODIUM
     Indication: THROMBOSIS PROPHYLAXIS
     Route: 065
  12. CEFUROXIME. [Concomitant]
     Active Substance: CEFUROXIME
     Indication: PNEUMONIA
  13. MEROPENEM. [Suspect]
     Active Substance: MEROPENEM
     Indication: INFECTION
     Route: 065
  14. CLARITHROMYCIN. [Concomitant]
     Active Substance: CLARITHROMYCIN
     Indication: PNEUMONIA
  15. RAMIPRIL. [Concomitant]
     Active Substance: RAMIPRIL

REACTIONS (8)
  - Drug ineffective [Unknown]
  - Renal failure [Recovering/Resolving]
  - Pulmonary embolism [Recovering/Resolving]
  - Obstructive shock [Recovering/Resolving]
  - Atrial fibrillation [Recovering/Resolving]
  - Product use issue [Unknown]
  - Hepatic failure [Recovering/Resolving]
  - Overdose [Unknown]
